FAERS Safety Report 9999631 (Version 1)
Quarter: 2014Q1

REPORT INFORMATION
  Report Type: Spontaneous
  Country: US (occurrence: None)
  Receive Date: 20140228
  Receipt Date: 20140228
  Transmission Date: 20141002
  Serious: Yes (Hospitalization)
  Sender: FDA-Public Use
  Company Number: PHEH2013US000583

PATIENT
  Age: 48 Year
  Sex: Male

DRUGS (3)
  1. NEORAL [Suspect]
     Indication: HEART AND LUNG TRANSPLANT
     Route: 048
  2. NEORAL [Suspect]
     Indication: HEART AND LUNG TRANSPLANT
     Route: 048
  3. NEORAL [Suspect]
     Indication: LIVER TRANSPLANT
     Route: 048

REACTIONS (1)
  - Herpes zoster [None]
